FAERS Safety Report 20416332 (Version 1)
Quarter: 2022Q1

REPORT INFORMATION
  Report Type: Spontaneous
  Country: US (occurrence: None)
  Receive Date: 20220202
  Receipt Date: 20220202
  Transmission Date: 20220424
  Serious: Yes (Hospitalization)
  Sender: FDA-Public Use
  Company Number: None

PATIENT
  Sex: Male
  Weight: 92.5 kg

DRUGS (4)
  1. MERCAPTOPURINE [Suspect]
     Active Substance: MERCAPTOPURINE
     Dates: end: 20220124
  2. METHOTREXATE [Suspect]
     Active Substance: METHOTREXATE
     Dates: end: 20220118
  3. DEXAMETHASONE [Suspect]
     Active Substance: DEXAMETHASONE
     Dates: end: 20220108
  4. VINCRISTINE SULFATE [Suspect]
     Active Substance: VINCRISTINE SULFATE
     Dates: end: 20220104

REACTIONS (5)
  - Febrile neutropenia [None]
  - COVID-19 [None]
  - Pneumonia [None]
  - Platelet count decreased [None]
  - Blood potassium decreased [None]

NARRATIVE: CASE EVENT DATE: 20220128
